FAERS Safety Report 9784515 (Version 2)
Quarter: 2013Q4

REPORT INFORMATION
  Report Type: Spontaneous
  Country: US (occurrence: US)
  Receive Date: 20131226
  Receipt Date: 20131231
  Transmission Date: 20140711
  Serious: Yes (Hospitalization)
  Sender: FDA-Public Use
  Company Number: US-B.I. PHARMACEUTICALS,INC./RIDGEFIELD-2013-BI-42938BP

PATIENT
  Age: 75 Year
  Sex: Female
  Weight: 77 kg

DRUGS (2)
  1. SPIRIVA [Suspect]
     Indication: EMPHYSEMA
     Dosage: 18 MCG
     Route: 055
     Dates: start: 20130927, end: 20131003
  2. SPIRIVA [Suspect]
     Dosage: 18 MCG
     Route: 055
     Dates: start: 20131010, end: 20131011

REACTIONS (7)
  - Atrial fibrillation [Not Recovered/Not Resolved]
  - Haemorrhoidal haemorrhage [Recovered/Resolved]
  - Cough [Recovered/Resolved]
  - Atrial fibrillation [Recovered/Resolved]
  - Cough [Recovered/Resolved]
  - Eye pain [Not Recovered/Not Resolved]
  - Eyelid ptosis [Not Recovered/Not Resolved]
